FAERS Safety Report 16704107 (Version 1)
Quarter: 2019Q3

REPORT INFORMATION
  Report Type: Spontaneous
  Country: US (occurrence: US)
  Receive Date: 20190814
  Receipt Date: 20190814
  Transmission Date: 20191004
  Serious: No
  Sender: FDA-Public Use
  Company Number: US-TEVA-2019-US-1090080

PATIENT
  Sex: Female

DRUGS (1)
  1. LORAZEPAM WATSON [Suspect]
     Active Substance: LORAZEPAM
     Dates: start: 20190805, end: 201908

REACTIONS (7)
  - Gait disturbance [Unknown]
  - Depression [Unknown]
  - Dyspnoea [Unknown]
  - Product odour abnormal [Unknown]
  - Product substitution issue [Unknown]
  - Nervousness [Unknown]
  - Restlessness [Unknown]

NARRATIVE: CASE EVENT DATE: 201908
